FAERS Safety Report 5273509-9 (Version None)
Quarter: 2007Q1

REPORT INFORMATION
  Report Type: 
  Country: None (occurrence: None)
  Receive Date: 20070320
  Receipt Date: 20070306
  Transmission Date: 20070707
  Serious: Yes (Hospitalization)
  Sender: FDA-Public Use
  Company Number: MEDI-0004519

PATIENT
  Age: 3 Month
  Sex: Male
  Weight: 3.41 kg

DRUGS (2)
  1. SYNAGIS [Suspect]
     Indication: ANTIVIRAL PROPHYLAXIS
     Dosage: 48 MG, 1 IN 30 D, INTRAMUSCULAR
     Route: 030
     Dates: start: 20051021, end: 20051216
  2. SPIRONOLACTONE [Concomitant]

REACTIONS (4)
  - ACUTE RESPIRATORY FAILURE [None]
  - BRONCHIOLITIS [None]
  - HAEMOPHILUS INFECTION [None]
  - RESPIRATORY SYNCYTIAL VIRUS INFECTION [None]
